FAERS Safety Report 16340777 (Version 1)
Quarter: 2019Q2

REPORT INFORMATION
  Report Type: Spontaneous
  Country: PL (occurrence: PL)
  Receive Date: 20190522
  Receipt Date: 20190522
  Transmission Date: 20190711
  Serious: Yes (Hospitalization)
  Sender: FDA-Public Use
  Company Number: PL-TEVA-2019-PL-1053180

PATIENT
  Age: 75 Year
  Sex: Female
  Weight: 76 kg

DRUGS (16)
  1. ATORVASTATIN [Suspect]
     Active Substance: ATORVASTATIN
     Indication: DYSLIPIDAEMIA
     Dosage: 160 MILLIGRAM DAILY; 40 MILLIGRAM ONCE EVERY 6 HOURS
     Route: 048
     Dates: start: 20160405, end: 20160523
  2. METFORMIN [Concomitant]
     Active Substance: METFORMIN HYDROCHLORIDE
     Indication: TYPE 2 DIABETES MELLITUS
     Dosage: 3000 MILLIGRAM DAILY; 1 IN 8 HR
     Route: 048
     Dates: start: 20160405, end: 20160523
  3. CLOPIDOGREL [Concomitant]
     Active Substance: CLOPIDOGREL BISULFATE
     Indication: CORONARY ANGIOPLASTY
     Dosage: 300 MILLIGRAM DAILY; 1 IN 6 HR
     Route: 048
     Dates: start: 20160405, end: 20161026
  4. TELMISARTAN. [Concomitant]
     Active Substance: TELMISARTAN
     Indication: HYPERTENSION
     Dosage: 160 MILLIGRAM DAILY;
     Route: 048
     Dates: start: 20160405, end: 20160522
  5. METFORMIN [Concomitant]
     Active Substance: METFORMIN HYDROCHLORIDE
     Dosage: 3000 MILLIGRAM DAILY; 1 IN 8 HR
     Route: 048
     Dates: start: 20160423
  6. NEBIVOLOL. [Concomitant]
     Active Substance: NEBIVOLOL
     Indication: CORONARY ARTERY DISEASE
  7. ALIROCUMAB [Suspect]
     Active Substance: ALIROCUMAB
     Indication: HYPERCHOLESTEROLAEMIA
     Route: 058
     Dates: start: 20160523, end: 20160620
  8. ALIROCUMAB [Suspect]
     Active Substance: ALIROCUMAB
     Route: 058
     Dates: start: 20160817
  9. PANTOPRAZOLE [Concomitant]
     Active Substance: PANTOPRAZOLE
     Indication: ANTIPLATELET THERAPY
     Dosage: 160 MILLIGRAM DAILY; 1 IN 6 HR
     Route: 048
     Dates: start: 20160405, end: 20161026
  10. TORASEMIDE [Concomitant]
     Active Substance: TORSEMIDE
     Indication: HYPERTENSION
     Dosage: 40 MILLIGRAM DAILY; 1 IN 6 HR
     Route: 048
     Dates: start: 20160405
  11. ACETYLSALICYLIC ACID [Concomitant]
     Active Substance: ASPIRIN
     Indication: CORONARY ARTERY DISEASE
     Dosage: 300 MILLIGRAM DAILY;
     Route: 048
     Dates: start: 2014
  12. NEBIVOLOL. [Concomitant]
     Active Substance: NEBIVOLOL
     Indication: HYPERTENSION
     Dosage: 20 MILLIGRAM DAILY;
     Route: 048
     Dates: start: 20160405
  13. AMLODIPINE [Concomitant]
     Active Substance: AMLODIPINE BESYLATE
     Indication: HYPERTENSION
     Dosage: 10 MILLIGRAM DAILY; 1 IN 12 HR
     Route: 048
     Dates: start: 2010
  14. DOXAZOSIN [Concomitant]
     Active Substance: DOXAZOSIN\DOXAZOSIN MESYLATE
     Indication: HYPERTENSION
     Dosage: 8 MILLIGRAM DAILY; 1 IN 6 HR
     Route: 048
     Dates: start: 20160405, end: 20170130
  15. DOXAZOSIN [Concomitant]
     Active Substance: DOXAZOSIN\DOXAZOSIN MESYLATE
     Dosage: 4 MILLIGRAM DAILY;
     Route: 048
     Dates: start: 20170130
  16. TELMISARTAN. [Concomitant]
     Active Substance: TELMISARTAN
     Dosage: 160 MILLIGRAM DAILY; STOPPED
     Route: 048
     Dates: start: 20160523

REACTIONS (1)
  - Rash [Recovered/Resolved]

NARRATIVE: CASE EVENT DATE: 20160624
